FAERS Safety Report 16425087 (Version 1)
Quarter: 2019Q2

REPORT INFORMATION
  Report Type: Spontaneous
  Country: US (occurrence: US)
  Receive Date: 20190506
  Receipt Date: 20190506
  Transmission Date: 20190711
  Serious: No
  Sender: FDA-Public Use
  Company Number: None

PATIENT
  Age: 95 Year
  Sex: Female

DRUGS (1)
  1. ODOMZO [Suspect]
     Active Substance: SONIDEGIB
     Indication: BASAL CELL CARCINOMA
     Dosage: ?          OTHER FREQUENCY:1 HR BFORE MEAL;?
     Route: 048
     Dates: start: 201902

REACTIONS (2)
  - Dehydration [None]
  - Hypotension [None]
